FAERS Safety Report 25162674 (Version 1)
Quarter: 2025Q2

REPORT INFORMATION
  Report Type: Spontaneous
  Country: CN (occurrence: CN)
  Receive Date: 20250404
  Receipt Date: 20250404
  Transmission Date: 20250716
  Serious: Yes (Hospitalization, Other)
  Sender: Kenvue
  Company Number: CN-KENVUE-20250309406

PATIENT

DRUGS (4)
  1. CHILDRENS MOTRIN [Suspect]
     Active Substance: IBUPROFEN
     Indication: Nasopharyngitis
     Route: 048
     Dates: start: 20250315
  2. ACETAMINOPHEN [Suspect]
     Active Substance: ACETAMINOPHEN
     Indication: Nasopharyngitis
     Route: 048
     Dates: start: 20250315
  3. CEFIXIME [Suspect]
     Active Substance: CEFIXIME
     Indication: Nasopharyngitis
     Dosage: 100 MILLIGRAM, TWICE A DAY
     Route: 048
     Dates: start: 20250315
  4. HERBALS [Suspect]
     Active Substance: HERBALS
     Indication: Nasopharyngitis
     Dosage: 10 MILLILITER, THRICE A DAY
     Route: 048
     Dates: start: 20250315

REACTIONS (2)
  - Product administered to patient of inappropriate age [Unknown]
  - SJS-TEN overlap [Recovering/Resolving]

NARRATIVE: CASE EVENT DATE: 20250315
